FAERS Safety Report 15769319 (Version 1)
Quarter: 2018Q4

REPORT INFORMATION
  Report Type: Spontaneous
  Country: FR (occurrence: FR)
  Receive Date: 20181228
  Receipt Date: 20181228
  Transmission Date: 20190205
  Serious: Yes (Other)
  Sender: FDA-Public Use
  Company Number: FR-TEVA-2018-FR-992195

PATIENT
  Sex: Female

DRUGS (1)
  1. LEVODOPA CARBIDOPA TEVA 100 MG/10 MG [Suspect]
     Active Substance: CARBIDOPA\LEVODOPA
     Route: 065

REACTIONS (2)
  - Anaphylactic shock [Unknown]
  - Product substitution issue [Unknown]
